FAERS Safety Report 4423018-1 (Version None)
Quarter: 2004Q3

REPORT INFORMATION
  Report Type: 
  Country: None (occurrence: None)
  Receive Date: 20040805
  Receipt Date: 20040720
  Transmission Date: 20050211
  Serious: Yes (Hospitalization)
  Sender: FDA-Public Use
  Company Number: 201284

PATIENT
  Age: 37 Year
  Sex: Female
  Weight: 87.0906 kg

DRUGS (1)
  1. AVONEX [Suspect]
     Indication: MULTIPLE SCLEROSIS
     Dosage: 30 MCG QW IM
     Dates: start: 20040501

REACTIONS (4)
  - ABDOMINAL PAIN UPPER [None]
  - ERUCTATION [None]
  - PAIN [None]
  - SWELLING [None]
